FAERS Safety Report 5742929-8 (Version None)
Quarter: 2008Q2

REPORT INFORMATION
  Report Type: 
  Country: None (occurrence: None)
  Receive Date: 20080519
  Receipt Date: 20080512
  Transmission Date: 20081010
  Serious: Yes (Hospitalization)
  Sender: FDA-Public Use
  Company Number: JP-ASTRAZENECA-2008AP02919

PATIENT
  Age: 22419 Day
  Sex: Male
  Weight: 57 kg

DRUGS (2)
  1. CASODEX [Suspect]
     Indication: PROSTATE CANCER
     Route: 048
     Dates: start: 20071130, end: 20080416
  2. ZOLADEX [Suspect]
     Route: 058
     Dates: start: 20071213

REACTIONS (1)
  - HEPATIC FUNCTION ABNORMAL [None]
